FAERS Safety Report 8009390-4 (Version None)
Quarter: 2011Q4

REPORT INFORMATION
  Report Type: 
  Country: None (occurrence: None)
  Receive Date: 20111227
  Receipt Date: 20111212
  Transmission Date: 20120403
  Serious: Yes (Hospitalization, Other)
  Sender: FDA-Public Use
  Company Number: ES-ACTELION-A-CH2011-57647

PATIENT
  Sex: Male
  Weight: 11.5 kg

DRUGS (2)
  1. ZAVESCA [Suspect]
     Indication: NIEMANN-PICK DISEASE
     Dosage: 100 MG, BID
     Route: 048
     Dates: start: 20090119
  2. PHENOBARBITAL TAB [Concomitant]

REACTIONS (7)
  - CONSTIPATION [None]
  - CONCOMITANT DISEASE AGGRAVATED [None]
  - WEIGHT DECREASED [None]
  - CONVULSION [None]
  - GROWTH RETARDATION [None]
  - TRANSAMINASES INCREASED [None]
  - FLUID INTAKE REDUCED [None]
